FAERS Safety Report 7171077-8 (Version None)
Quarter: 2010Q4

REPORT INFORMATION
  Report Type: 
  Country: None (occurrence: None)
  Receive Date: 20101207
  Receipt Date: 20101125
  Transmission Date: 20110411
  Serious: Yes (Hospitalization, Disabling)
  Sender: FDA-Public Use
  Company Number: 2010EU004295

PATIENT
  Age: 50 Year
  Sex: Female
  Weight: 86.5 kg

DRUGS (8)
  1. PROGRAF [Suspect]
     Indication: PROPHYLAXIS AGAINST TRANSPLANT REJECTION
     Dosage: 6 MG, ORAL
     Route: 048
     Dates: start: 20091009, end: 20100721
  2. CELLCEPT [Concomitant]
  3. HYDROCORTISONE [Concomitant]
  4. ZYLORIC (ALLOPURINOL SODIUM) [Concomitant]
  5. SECTRAL (ACEBUTOL HYDROCHLORIDE) [Concomitant]
  6. INEXIUM (ESOMEPRAZOLE SODIUM) [Concomitant]
  7. ATORVASTATIN CALCIUM [Concomitant]
  8. LYRICA [Concomitant]

REACTIONS (10)
  - DYSLIPIDAEMIA [None]
  - GOUT [None]
  - HIATUS HERNIA [None]
  - MACULAR OEDEMA [None]
  - NEURALGIA [None]
  - OPTIC NERVE INJURY [None]
  - PAPILLOEDEMA [None]
  - SCOTOMA [None]
  - TOXIC OPTIC NEUROPATHY [None]
  - VISUAL ACUITY REDUCED [None]
